FAERS Safety Report 20487278 (Version 2)
Quarter: 2022Q2

REPORT INFORMATION
  Report Type: Report from Study
  Country: US (occurrence: US)
  Receive Date: 20220217
  Receipt Date: 20220506
  Transmission Date: 20220721
  Serious: No
  Sender: FDA-Public Use
  Company Number: US-ACADIA PHARMACEUTICALS INC.-ACA-2022-PIM-000292

PATIENT
  Sex: Female

DRUGS (18)
  1. NUPLAZID [Suspect]
     Active Substance: PIMAVANSERIN TARTRATE
     Indication: Parkinson^s disease
     Dosage: 34 MILLIGRAM, QD
     Route: 048
     Dates: start: 202012
  2. NOURIANZ [Concomitant]
     Active Substance: ISTRADEFYLLINE
     Dosage: UNK
     Dates: start: 202112
  3. FLUCONAZOLE [Concomitant]
     Active Substance: FLUCONAZOLE
     Dosage: 150 MG
  4. CARBIDOPA\LEVODOPA [Concomitant]
     Active Substance: CARBIDOPA\LEVODOPA
  5. RASAGILINE MESYLATE [Concomitant]
     Active Substance: RASAGILINE MESYLATE
     Dosage: 1 MG
  6. PRAMIPEXOLE DIHYDROCHLORIDE [Concomitant]
     Active Substance: PRAMIPEXOLE DIHYDROCHLORIDE
     Dosage: UNK
  7. GABAPENTIN [Concomitant]
     Active Substance: GABAPENTIN
     Dosage: 300 MG
  8. MODAFINIL [Concomitant]
     Active Substance: MODAFINIL
     Dosage: 100 MG
  9. MODAFINIL [Concomitant]
     Active Substance: MODAFINIL
     Dosage: 200 MG
  10. ENTACAPONE [Concomitant]
     Active Substance: ENTACAPONE
     Dosage: 200 MG
  11. VITAMIN D3 [Concomitant]
     Active Substance: CHOLECALCIFEROL
     Dosage: 1000 UNIT
  12. culturelle digestive health [Concomitant]
  13. SENNA LEAF [Concomitant]
     Active Substance: SENNA LEAF
     Dosage: 8.6 MG
  14. COLACE [Concomitant]
     Active Substance: DOCUSATE SODIUM
     Dosage: 100 MG
  15. VITAMINS NOS [Concomitant]
     Active Substance: VITAMINS
  16. MIDODRINE [Concomitant]
     Active Substance: MIDODRINE
     Dosage: UNK
  17. RYTARY [Concomitant]
     Active Substance: CARBIDOPA\LEVODOPA
     Dosage: UNK
  18. INBRIJA [Concomitant]
     Active Substance: LEVODOPA
     Dosage: UNK

REACTIONS (2)
  - Adverse drug reaction [Unknown]
  - Product dose omission issue [Unknown]
